FAERS Safety Report 8239767-3 (Version None)
Quarter: 2012Q1

REPORT INFORMATION
  Report Type: 
  Country: None (occurrence: None)
  Receive Date: 20120309
  Receipt Date: 20110429
  Transmission Date: 20120608
  Serious: Yes (Disabling, Other)
  Sender: FDA-Public Use
  Company Number: PHHY2010US51594

PATIENT
  Age: 48 Year
  Sex: Female
  Weight: 63.5 kg

DRUGS (8)
  1. BACLOFEN [Concomitant]
  2. EXTAVIA [Suspect]
     Indication: MULTIPLE SCLEROSIS
     Dosage: 0.25 MG, QOD, SUBCUTANEOUS
     Route: 058
     Dates: start: 20100616
  3. GABAPENTIN [Concomitant]
  4. VITAMIN D [Concomitant]
  5. TRAMADOL HCL [Concomitant]
  6. ACETAMINOPHEN [Suspect]
     Dosage: PM
  7. VALIUM [Concomitant]
  8. NEXIUM [Concomitant]

REACTIONS (28)
  - PYREXIA [None]
  - SINUSITIS [None]
  - SINUS CONGESTION [None]
  - MUSCLE TIGHTNESS [None]
  - FATIGUE [None]
  - BACK PAIN [None]
  - GAIT DISTURBANCE [None]
  - OEDEMA PERIPHERAL [None]
  - INSOMNIA [None]
  - MULTIPLE SCLEROSIS RELAPSE [None]
  - BRONCHITIS [None]
  - TREMOR [None]
  - ARTHRALGIA [None]
  - ASTHENIA [None]
  - MUSCLE SPASMS [None]
  - NASOPHARYNGITIS [None]
  - PAIN IN EXTREMITY [None]
  - ABDOMINAL PAIN [None]
  - TINNITUS [None]
  - INJECTION SITE ERYTHEMA [None]
  - CHILLS [None]
  - LARYNGITIS [None]
  - CANDIDIASIS [None]
  - RESTLESSNESS [None]
  - PAIN [None]
  - DIZZINESS [None]
  - BURNING SENSATION [None]
  - MOVEMENT DISORDER [None]
